FAERS Safety Report 5251269-5 (Version None)
Quarter: 2007Q1

REPORT INFORMATION
  Report Type: 
  Country: None (occurrence: None)
  Receive Date: 20070228
  Receipt Date: 20070119
  Transmission Date: 20070707
  Serious: No
  Sender: FDA-Public Use
  Company Number: US-GLAXOSMITHKLINE-A0632299A

PATIENT
  Age: 21 Year
  Sex: Male
  Weight: 89.1 kg

DRUGS (2)
  1. LAMICTAL [Suspect]
     Indication: OBSESSIVE-COMPULSIVE DISORDER
     Route: 048
     Dates: start: 20060901
  2. NO CONCURRENT MEDICATION [Concomitant]

REACTIONS (1)
  - DYSKINESIA [None]
